FAERS Safety Report 5677698-3 (Version None)
Quarter: 2008Q1

REPORT INFORMATION
  Report Type: 
  Country: None (occurrence: None)
  Receive Date: 20080324
  Receipt Date: 20080227
  Transmission Date: 20080703
  Serious: No
  Sender: FDA-Public Use
  Company Number: US-BOEHRINGER INGELHEIM GMBH, GERMANY-2008-BP-02091BP

PATIENT
  Age: 84 Year
  Sex: Female

DRUGS (12)
  1. SPIRIVA [Suspect]
     Indication: CHRONIC OBSTRUCTIVE PULMONARY DISEASE
     Route: 055
     Dates: start: 20060101
  2. OXYGEN [Concomitant]
  3. ALBUTEROL [Concomitant]
     Route: 055
  4. SYNTHROID [Concomitant]
  5. ASPIRIN [Concomitant]
  6. ATIVAN [Concomitant]
  7. ZETIA [Concomitant]
  8. ZESTRIL [Concomitant]
  9. CELEBREX [Concomitant]
  10. VITAMIN CAP [Concomitant]
  11. PROTONIX [Concomitant]
  12. ULTRACET [Concomitant]

REACTIONS (2)
  - DRUG INEFFECTIVE [None]
  - DYSPNOEA [None]
